FAERS Safety Report 7827034-9 (Version None)
Quarter: 2011Q4

REPORT INFORMATION
  Report Type: 
  Country: None (occurrence: None)
  Receive Date: 20111020
  Receipt Date: 20111012
  Transmission Date: 20120403
  Serious: Yes (Hospitalization, Other)
  Sender: FDA-Public Use
  Company Number: JP-ASTELLAS-2011JP007394

PATIENT
  Age: 51 Year
  Sex: Male

DRUGS (1)
  1. PROGRAF [Suspect]
     Dosage: UNK
     Route: 065
     Dates: end: 20100101

REACTIONS (3)
  - DRUG INEFFECTIVE [None]
  - ANTIPHOSPHOLIPID SYNDROME [None]
  - CHRONIC GRAFT VERSUS HOST DISEASE [None]
